FAERS Safety Report 5085660-7 (Version None)
Quarter: 2006Q3

REPORT INFORMATION
  Report Type: 
  Country: None (occurrence: None)
  Receive Date: 20060822
  Receipt Date: 20050525
  Transmission Date: 20061208
  Serious: Yes (Hospitalization, Disabling)
  Sender: FDA-Public Use
  Company Number: US-ROCHE-405821

PATIENT
  Age: 38 Year
  Sex: Female
  Weight: 113 kg

DRUGS (6)
  1. ACCUTANE [Suspect]
     Indication: ACNE
     Route: 048
     Dates: start: 19960305
  2. ACCUTANE [Suspect]
     Dosage: THE DOSAGE REGIMEN WAS INCREASED.
     Route: 048
     Dates: start: 19960330
  3. ACCUTANE [Suspect]
     Dosage: THE DOSAGE REGIMEN WAS DECREASED.
     Route: 048
     Dates: start: 19960402
  4. ACCUTANE [Suspect]
     Route: 048
     Dates: start: 19960427, end: 19960715
  5. ACCUTANE [Suspect]
     Dosage: AT NIGHT
     Route: 048
     Dates: start: 20021115
  6. ACCUTANE [Suspect]
     Dosage: 20MG AM AND 40MG AT NIGHT
     Route: 048
     Dates: start: 20030310, end: 20030728

REACTIONS (26)
  - BLOOD CHOLESTEROL INCREASED [None]
  - BRONCHITIS [None]
  - CHAPPED LIPS [None]
  - CHEST DISCOMFORT [None]
  - COLITIS [None]
  - COLITIS ULCERATIVE [None]
  - CONSTIPATION [None]
  - CONVULSION [None]
  - DISEASE RECURRENCE [None]
  - DRY EYE [None]
  - FATIGUE [None]
  - GASTRITIS [None]
  - GASTRITIS EROSIVE [None]
  - GASTROINTESTINAL DISORDER [None]
  - HAEMORRHOIDS [None]
  - HEADACHE [None]
  - INFLAMMATORY BOWEL DISEASE [None]
  - INTESTINAL HAEMORRHAGE [None]
  - MULTI-ORGAN DISORDER [None]
  - NAUSEA [None]
  - OESOPHAGEAL ULCER [None]
  - RECTAL HAEMORRHAGE [None]
  - STRESS [None]
  - SUICIDAL IDEATION [None]
  - TEMPOROMANDIBULAR JOINT SYNDROME [None]
  - VISUAL ACUITY REDUCED [None]
